FAERS Safety Report 5701276-0 (Version None)
Quarter: 2008Q2

REPORT INFORMATION
  Report Type: 
  Country: None (occurrence: None)
  Receive Date: 20080407
  Receipt Date: 20080328
  Transmission Date: 20081010
  Serious: Yes (Hospitalization)
  Sender: FDA-Public Use
  Company Number: GXKR2008IT03023

PATIENT
  Age: 62 Year
  Sex: Male

DRUGS (2)
  1. HYDROXYCHLOROQUINE (NGX)(HYDROXYCHLORIOQUINE) UNKNOWN [Suspect]
     Indication: POLYARTHRITIS
     Dosage: 400 MG/DAY
  2. ROSUVASTATIN (ROSUVASTATIN) [Concomitant]

REACTIONS (7)
  - DERMATITIS [None]
  - DRUG RASH WITH EOSINOPHILIA AND SYSTEMIC SYMPTOMS [None]
  - EOSINOPHILIA [None]
  - FACE OEDEMA [None]
  - PROTEINURIA [None]
  - PYREXIA [None]
  - RASH PAPULAR [None]
